FAERS Safety Report 12768639 (Version 1)
Quarter: 2016Q3

REPORT INFORMATION
  Report Type: Spontaneous
  Country: US (occurrence: US)
  Receive Date: 20160921
  Receipt Date: 20160921
  Transmission Date: 20161109
  Serious: No
  Sender: FDA-Public Use
  Company Number: US-JAZZ-2016-US-010053

PATIENT
  Age: 35 Year
  Sex: Female

DRUGS (9)
  1. METHYLPHENIDATE. [Concomitant]
     Active Substance: METHYLPHENIDATE
     Dosage: 5 MG, UNK
  2. CLARITIN [Concomitant]
     Active Substance: LORATADINE
  3. MONTELUKAST [Concomitant]
     Active Substance: MONTELUKAST SODIUM
  4. ADVIL [Concomitant]
     Active Substance: IBUPROFEN
  5. EPIPEN [Concomitant]
     Active Substance: EPINEPHRINE
  6. TYLENOL [Concomitant]
     Active Substance: ACETAMINOPHEN
  7. METHYLPHENIDATE. [Concomitant]
     Active Substance: METHYLPHENIDATE
     Dosage: 18 MG, UNK
  8. ARMOUR THYROID [Concomitant]
     Active Substance: THYROID, PORCINE
  9. XYREM [Suspect]
     Active Substance: SODIUM OXYBATE
     Indication: NARCOLEPSY
     Dosage: 2.25 G, BID
     Route: 048
     Dates: start: 20160527

REACTIONS (1)
  - Migraine [Unknown]

NARRATIVE: CASE EVENT DATE: 201605
